FAERS Safety Report 9500769 (Version 2)
Quarter: 2013Q3

REPORT INFORMATION
  Report Type: Spontaneous
  Country: MX (occurrence: MX)
  Receive Date: 20130905
  Receipt Date: 20130917
  Transmission Date: 20140515
  Serious: No
  Sender: FDA-Public Use
  Company Number: MX-ELI_LILLY_AND_COMPANY-MX201308010053

PATIENT
  Age: 65 Year
  Sex: Male

DRUGS (4)
  1. CIALIS [Suspect]
     Dosage: 20 MG, PRN
     Route: 048
  2. CIALIS [Suspect]
     Dosage: 5 MG, OTHER
     Route: 048
     Dates: start: 20130826
  3. BI-EUGLUCON M [Concomitant]
     Dosage: 1 DF, UNKNOWN
  4. TELMISARTAN [Concomitant]
     Dosage: 1 DF, UNKNOWN

REACTIONS (1)
  - Vision blurred [Recovered/Resolved]
